FAERS Safety Report 24052814 (Version 1)
Quarter: 2024Q3

REPORT INFORMATION
  Report Type: Spontaneous
  Country: CN (occurrence: CN)
  Receive Date: 20240705
  Receipt Date: 20240705
  Transmission Date: 20241017
  Serious: Yes (Other)
  Sender: BEIGENE
  Company Number: CN-BEIGENE-BGN-2024-010011

PATIENT

DRUGS (2)
  1. TISLELIZUMAB [Suspect]
     Active Substance: TISLELIZUMAB
     Indication: Oesophageal carcinoma
     Dosage: 200 MILLIGRAM
     Route: 041
     Dates: start: 20240614
  2. SODIUM CHLORIDE [Concomitant]
     Active Substance: SODIUM CHLORIDE
     Indication: Vehicle solution use
     Dosage: 100 MILLILITER
     Route: 041
     Dates: start: 20240614, end: 20240614

REACTIONS (5)
  - Peritonitis [Recovering/Resolving]
  - Oedema [Recovering/Resolving]
  - Intestinal obstruction [Recovering/Resolving]
  - Mesenteric artery embolism [Recovering/Resolving]
  - Intra-abdominal fluid collection [Recovering/Resolving]

NARRATIVE: CASE EVENT DATE: 20240614
